FAERS Safety Report 7058548-X (Version None)
Quarter: 2010Q4

REPORT INFORMATION
  Report Type: 
  Country: None (occurrence: None)
  Receive Date: 20101022
  Receipt Date: 20101015
  Transmission Date: 20110411
  Serious: Yes (Hospitalization)
  Sender: FDA-Public Use
  Company Number: A0810216A

PATIENT
  Age: 64 Year
  Sex: Male
  Weight: 93.6 kg

DRUGS (2)
  1. AVANDIA [Suspect]
     Dosage: 8MG PER DAY
     Route: 048
     Dates: start: 20060101, end: 20070531
  2. INSULIN [Concomitant]

REACTIONS (2)
  - CAROTID ARTERY STENOSIS [None]
  - MYOCARDIAL INFARCTION [None]
